FAERS Safety Report 11604970 (Version 1)
Quarter: 2015Q4

REPORT INFORMATION
  Report Type: Spontaneous
  Country: US (occurrence: US)
  Receive Date: 20151007
  Receipt Date: 20151007
  Transmission Date: 20160304
  Serious: No
  Sender: FDA-Public Use
  Company Number: US-ELI_LILLY_AND_COMPANY-US201510001152

PATIENT
  Age: 48 Year
  Sex: Female

DRUGS (2)
  1. INSULIN [Concomitant]
     Active Substance: INSULIN NOS
     Route: 065
  2. TRULICITY [Suspect]
     Active Substance: DULAGLUTIDE
     Indication: TYPE 2 DIABETES MELLITUS
     Dosage: UNK, WEEKLY (1/W)
     Route: 065
     Dates: start: 201504

REACTIONS (2)
  - Fatigue [Unknown]
  - Feeling of despair [Unknown]

NARRATIVE: CASE EVENT DATE: 201504
